FAERS Safety Report 14336771 (Version 3)
Quarter: 2019Q1

REPORT INFORMATION
  Report Type: Spontaneous
  Country: ES (occurrence: ES)
  Receive Date: 20171229
  Receipt Date: 20190302
  Transmission Date: 20190417
  Serious: Yes (Other)
  Sender: FDA-Public Use
  Company Number: ES-AUROBINDO-AUR-APL-2017-47725

PATIENT

DRUGS (11)
  1. ORFIDAL [Concomitant]
     Active Substance: LORAZEPAM
     Indication: PRODUCT USED FOR UNKNOWN INDICATION
     Dosage: UNK
  2. IDEOS UNIDIA [Concomitant]
     Active Substance: CALCIUM CARBONATE\CHOLECALCIFEROL
     Indication: PRODUCT USED FOR UNKNOWN INDICATION
     Dosage: UNK
     Route: 065
  3. FERRIC PYROPHOSPHATE [Concomitant]
     Active Substance: FERRIC PYROPHOSPHATE
     Indication: BLOOD IRON DECREASED
     Dosage: UNK
     Route: 065
  4. DESLORATADINA [Concomitant]
     Active Substance: DESLORATADINE
     Indication: SEASONAL ALLERGY
     Dosage: UNK
     Route: 065
  5. OMEPRAZOL [Concomitant]
     Active Substance: OMEPRAZOLE
     Indication: PRODUCT USED FOR UNKNOWN INDICATION
     Dosage: UNK
     Route: 065
  6. SERTRALINE [Suspect]
     Active Substance: SERTRALINE HYDROCHLORIDE
     Indication: PRODUCT USED FOR UNKNOWN INDICATION
     Dosage: UNK
     Route: 065
  7. EFENSOL [Concomitant]
     Indication: DIARRHOEA
     Dosage: UNK
     Route: 065
  8. CYANOCOBALAMIN. [Concomitant]
     Active Substance: CYANOCOBALAMIN
     Indication: PRODUCT USED FOR UNKNOWN INDICATION
     Dosage: UNK
  9. VEDOLIZUMAB [Suspect]
     Active Substance: VEDOLIZUMAB
     Indication: CROHN^S DISEASE
     Dosage: 300 MG, Q8WEEKS
     Route: 042
     Dates: start: 20160701
  10. FISIOGEN [Concomitant]
     Indication: BLOOD IRON DECREASED
     Dosage: UNK
     Route: 065
  11. ASCORBIC ACID. [Concomitant]
     Active Substance: ASCORBIC ACID
     Indication: BLOOD IRON DECREASED
     Dosage: UNK
     Route: 065

REACTIONS (18)
  - Dizziness [Recovered/Resolved]
  - Eye disorder [Unknown]
  - Vitamin C deficiency [Unknown]
  - Dental operation [Unknown]
  - Muscle spasms [Recovered/Resolved]
  - Headache [Recovered/Resolved]
  - Arthralgia [Unknown]
  - Hypersensitivity [Recovered/Resolved]
  - Eye pain [Unknown]
  - Dry eye [Unknown]
  - Frequent bowel movements [Recovered/Resolved]
  - Scab [Recovered/Resolved]
  - Malaise [Recovered/Resolved]
  - Nausea [Recovered/Resolved]
  - Aphonia [Unknown]
  - Fatigue [Unknown]
  - Ill-defined disorder [Unknown]
  - Pruritus [Unknown]

NARRATIVE: CASE EVENT DATE: 20170407
